FAERS Safety Report 10886090 (Version 1)
Quarter: 2015Q1

REPORT INFORMATION
  Report Type: Spontaneous
  Country: None (occurrence: None)
  Receive Date: 20150302
  Receipt Date: 20150302
  Transmission Date: 20150721
  Serious: Yes (Other)
  Sender: FDA-Public Use
  Company Number: GEL-2015-001

PATIENT
  Sex: Female

DRUGS (1)
  1. GELUSIL [Suspect]
     Active Substance: ALUMINUM HYDROXIDE\DIMETHICONE\MAGNESIUM HYDROXIDE\SILICON DIOXIDE
     Dosage: 300 TABLETS/WEEK

REACTIONS (2)
  - Drug dependence [None]
  - Intentional overdose [None]
